FAERS Safety Report 16922054 (Version 1)
Quarter: 2019Q4

REPORT INFORMATION
  Report Type: Spontaneous
  Country: IN (occurrence: IN)
  Receive Date: 20191015
  Receipt Date: 20191015
  Transmission Date: 20200122
  Serious: Yes (Other)
  Sender: FDA-Public Use
  Company Number: NVSC2019IN002583

PATIENT
  Age: 42 Year
  Sex: Female

DRUGS (1)
  1. MYFORTIC [Suspect]
     Active Substance: MYCOPHENOLATE SODIUM
     Indication: HISTOPLASMOSIS DISSEMINATED
     Dosage: UNK
     Route: 065

REACTIONS (1)
  - Immune reconstitution inflammatory syndrome [Unknown]
